FAERS Safety Report 6282445-0 (Version None)
Quarter: 2009Q3

REPORT INFORMATION
  Report Type: 
  Country: None (occurrence: None)
  Receive Date: 20090724
  Receipt Date: 20090714
  Transmission Date: 20100115
  Serious: Yes (Other)
  Sender: FDA-Public Use
  Company Number: GB-ROCHE-643268

PATIENT
  Sex: Male

DRUGS (1)
  1. ROACCUTANE [Suspect]
     Indication: ACNE
     Route: 065
     Dates: start: 19990901, end: 20000301

REACTIONS (8)
  - DRY EYE [None]
  - DRY MOUTH [None]
  - DRY SKIN [None]
  - LACRIMAL DISORDER [None]
  - MYALGIA [None]
  - NASAL DRYNESS [None]
  - PAIN [None]
  - PHOTOPHOBIA [None]
